FAERS Safety Report 4588547-9 (Version None)
Quarter: 2005Q1

REPORT INFORMATION
  Report Type: 
  Country: None (occurrence: None)
  Receive Date: 20050216
  Receipt Date: 20050216
  Transmission Date: 20050727
  Serious: Yes (Life-Threatening, Other)
  Sender: FDA-Public Use
  Company Number: None

PATIENT
  Age: 71 Year
  Sex: Male

DRUGS (2)
  1. PROZAC [Suspect]
     Indication: DEPRESSION
     Dates: start: 19880101, end: 19890531
  2. PROZAC [Suspect]
     Indication: POST-TRAUMATIC STRESS DISORDER
     Dates: start: 19880101, end: 19890531

REACTIONS (4)
  - IMPULSE-CONTROL DISORDER [None]
  - JUDGEMENT IMPAIRED [None]
  - PHYSICAL ASSAULT [None]
  - SUICIDE ATTEMPT [None]
